FAERS Safety Report 11580075 (Version 1)
Quarter: 2015Q3

REPORT INFORMATION
  Report Type: Spontaneous
  Country: US (occurrence: US)
  Receive Date: 20150916
  Receipt Date: 20150916
  Transmission Date: 20151125
  Serious: No
  Sender: FDA-Public Use
  Company Number: US-ELI_LILLY_AND_COMPANY-US200805001238

PATIENT
  Age: 82 Year
  Sex: Female

DRUGS (7)
  1. ASPIRIN. [Concomitant]
     Active Substance: ASPIRIN
     Dosage: 81 MG, UNK
  2. FORTEO [Suspect]
     Active Substance: TERIPARATIDE
     Indication: RESORPTION BONE INCREASED
     Dosage: UNK, UNKNOWN
     Route: 065
     Dates: start: 20070424
  3. CALTRATE +D [Concomitant]
  4. OCUVITE [Concomitant]
     Active Substance: VITAMINS
     Dosage: UNK, DAILY (1/D)
  5. CYANOCOBALAMIN. [Concomitant]
     Active Substance: CYANOCOBALAMIN
     Dosage: 1000 UG, MONTHLY (1/M)
  6. CENTRUM SILVER [Concomitant]
     Active Substance: VITAMINS
  7. LEVOTHYROXINE. [Concomitant]
     Active Substance: LEVOTHYROXINE
     Dosage: 137 UG, UNK

REACTIONS (4)
  - Vitamin D decreased [Unknown]
  - Ear discomfort [Recovering/Resolving]
  - Muscle spasms [Recovered/Resolved]
  - Jaw disorder [Not Recovered/Not Resolved]

NARRATIVE: CASE EVENT DATE: 2008
